FAERS Safety Report 23162672 (Version 1)
Quarter: 2023Q4

REPORT INFORMATION
  Report Type: Spontaneous
  Country: US (occurrence: US)
  Receive Date: 20231109
  Receipt Date: 20231109
  Transmission Date: 20240109
  Serious: Yes (Other)
  Sender: FDA-Public Use
  Company Number: US-AVET LIFESCIENCES LTD-2023-AVET-000324

PATIENT
  Age: 65 Year
  Sex: Female

DRUGS (7)
  1. VENLAFAXINE HYDROCHLORIDE [Interacting]
     Active Substance: VENLAFAXINE HYDROCHLORIDE
     Indication: Anxiety
     Dosage: 75 MG BY MOUTH DAILY
     Route: 048
  2. VENLAFAXINE HYDROCHLORIDE [Interacting]
     Active Substance: VENLAFAXINE HYDROCHLORIDE
     Dosage: INCREASED TO 150 MG DAILY
  3. DASATINIB [Interacting]
     Active Substance: DASATINIB
     Indication: Chronic myeloid leukaemia
     Dosage: 100 MG BY MOUTH DAILY
     Route: 048
  4. DASATINIB [Interacting]
     Active Substance: DASATINIB
     Dosage: DECREASED TO 50 MG BY MOUTH DAILY
     Route: 048
  5. DASATINIB [Interacting]
     Active Substance: DASATINIB
     Dosage: DECREASED TO 20 MG DAILY
  6. PANTOPRAZOLE [Concomitant]
     Active Substance: PANTOPRAZOLE
     Indication: Gastrooesophageal reflux disease
     Dosage: 40 MG BY MOUTH DAILY
     Route: 048
  7. PANTOPRAZOLE [Concomitant]
     Active Substance: PANTOPRAZOLE
     Dosage: 40 MILLIGRAM,  EVERY OTHER DAY
     Route: 048

REACTIONS (6)
  - Drug interaction [Unknown]
  - Sedation [Recovering/Resolving]
  - Headache [Recovering/Resolving]
  - Insomnia [Recovering/Resolving]
  - Anxiety [Recovering/Resolving]
  - Suicide attempt [Unknown]
